FAERS Safety Report 23942635 (Version 3)
Quarter: 2025Q2

REPORT INFORMATION
  Report Type: Spontaneous
  Country: US (occurrence: US)
  Receive Date: 20240605
  Receipt Date: 20250523
  Transmission Date: 20250717
  Serious: Yes (Hospitalization, Other)
  Sender: AMGEN
  Company Number: US-AMGEN-USASP2024107732

PATIENT

DRUGS (2)
  1. INFLIXIMAB [Suspect]
     Active Substance: INFLIXIMAB
     Indication: Colitis ulcerative
     Route: 065
  2. ADALIMUMAB [Suspect]
     Active Substance: ADALIMUMAB
     Indication: Colitis ulcerative
     Route: 065

REACTIONS (14)
  - Unevaluable event [Unknown]
  - Megacolon [Unknown]
  - Venous thrombosis [Unknown]
  - Procedural complication [Unknown]
  - Post procedural complication [Unknown]
  - Abdominal sepsis [Unknown]
  - Anorectal disorder [Unknown]
  - Pelvic fluid collection [Unknown]
  - Stoma complication [Unknown]
  - Postoperative ileus [Unknown]
  - Therapy non-responder [Unknown]
  - Post procedural infection [Unknown]
  - Postoperative wound infection [Unknown]
  - Infection [Unknown]
